FAERS Safety Report 4942685-7 (Version None)
Quarter: 2006Q1

REPORT INFORMATION
  Report Type: 
  Country: None (occurrence: None)
  Receive Date: 20060309
  Receipt Date: 20060228
  Transmission Date: 20060701
  Serious: Yes (Other)
  Sender: FDA-Public Use
  Company Number: 2006-02-0405

PATIENT
  Age: 19 Year
  Sex: Male

DRUGS (3)
  1. PEG-INTRON [Suspect]
     Indication: BONE SARCOMA
     Dosage: 80 MCG Q2W SUBCUTANEOUS
     Route: 058
     Dates: start: 20040101
  2. TAMOXIFEN CITRATE [Concomitant]
  3. THALIDOMIDE [Concomitant]

REACTIONS (3)
  - HAEMATURIA [None]
  - MUCOUS MEMBRANE DISORDER [None]
  - URINARY BLADDER POLYP [None]
